FAERS Safety Report 19036381 (Version 1)
Quarter: 2021Q1

REPORT INFORMATION
  Report Type: Spontaneous
  Country: US (occurrence: US)
  Receive Date: 20210319
  Receipt Date: 20210319
  Transmission Date: 20210420
  Serious: Yes (Death)
  Sender: FDA-Public Use
  Company Number: None

PATIENT
  Age: 79 Year
  Sex: Female

DRUGS (8)
  1. ENTACAPONE. [Concomitant]
     Active Substance: ENTACAPONE
     Dates: start: 20210120
  2. SERTRALINE [Concomitant]
     Active Substance: SERTRALINE HYDROCHLORIDE
     Dates: start: 20210120
  3. CARBIDOPA/LEVODOPA [Concomitant]
     Active Substance: CARBIDOPA\LEVODOPA
     Dates: start: 20210120
  4. RALOXIFENE. [Concomitant]
     Active Substance: RALOXIFENE
     Dates: start: 20210120
  5. SELEGILINE [Concomitant]
     Active Substance: SELEGILINE
     Dates: start: 20210120
  6. NUPLAZID [Suspect]
     Active Substance: PIMAVANSERIN TARTRATE
     Indication: HALLUCINATION
     Route: 048
     Dates: start: 20210120
  7. CLONAZEPAM. [Concomitant]
     Active Substance: CLONAZEPAM
     Dates: start: 20210120
  8. RYTARY [Concomitant]
     Active Substance: CARBIDOPA\LEVODOPA
     Dates: start: 20210120

REACTIONS (1)
  - Death [None]

NARRATIVE: CASE EVENT DATE: 20210309
